FAERS Safety Report 10540201 (Version 1)
Quarter: 2014Q4

REPORT INFORMATION
  Report Type: Spontaneous
  Country: GB (occurrence: GB)
  Receive Date: 20141024
  Receipt Date: 20141024
  Transmission Date: 20150529
  Serious: Yes (Hospitalization)
  Sender: FDA-Public Use
  Company Number: GB-ASTRAZENECA-2014SE79018

PATIENT
  Age: 79 Year
  Sex: Female

DRUGS (9)
  1. AMANTADINE [Suspect]
     Active Substance: AMANTADINE
     Route: 048
     Dates: start: 20140924, end: 20141003
  2. SINEMET [Suspect]
     Active Substance: CARBIDOPA\LEVODOPA
     Dosage: SINEMET CR, 1 / 1DAYS
     Route: 048
  3. ROTIGOTINE [Suspect]
     Active Substance: ROTIGOTINE
     Route: 062
  4. SINEMET [Suspect]
     Active Substance: CARBIDOPA\LEVODOPA
     Dosage: 4 / 1DAYS
     Route: 048
  5. CEFALEXIN [Suspect]
     Active Substance: CEPHALEXIN
     Route: 048
  6. RIVASTIGMINE [Suspect]
     Active Substance: RIVASTIGMINE
     Route: 048
  7. NOVORAPID [Suspect]
     Active Substance: INSULIN ASPART
     Route: 030
  8. FOLIC ACID. [Suspect]
     Active Substance: FOLIC ACID
     Route: 048
  9. QUETIAPINE [Suspect]
     Active Substance: QUETIAPINE
     Route: 048

REACTIONS (3)
  - Fall [Recovered/Resolved]
  - Confusional state [Recovered/Resolved]
  - Loss of consciousness [Unknown]

NARRATIVE: CASE EVENT DATE: 20141002
